FAERS Safety Report 7546641-4 (Version None)
Quarter: 2011Q2

REPORT INFORMATION
  Report Type: 
  Country: None (occurrence: None)
  Receive Date: 20110524
  Receipt Date: 20110302
  Transmission Date: 20111010
  Serious: No
  Sender: FDA-Public Use
  Company Number: 028486

PATIENT
  Sex: Female
  Weight: 67.1324 kg

DRUGS (3)
  1. CIMZIA [Suspect]
     Indication: RHEUMATOID ARTHRITIS
     Dosage: (200 MG 1X/2 WEEKS, LAST DOSE ON 16/FEB/2011 SUBCUTANEOUS)
     Route: 058
     Dates: start: 20101130
  2. FOLIC ACID [Concomitant]
  3. PREDNISONE [Concomitant]

REACTIONS (2)
  - INJECTION SITE HAEMATOMA [None]
  - INJECTION SITE PAIN [None]
